FAERS Safety Report 20453155 (Version 1)
Quarter: 2022Q1

REPORT INFORMATION
  Report Type: Spontaneous
  Country: GB (occurrence: GB)
  Receive Date: 20220210
  Receipt Date: 20220210
  Transmission Date: 20220424
  Serious: Yes (Hospitalization, Other)
  Sender: FDA-Public Use
  Company Number: GB-ABBVIE-22K-167-4272608-00

PATIENT
  Sex: Female

DRUGS (1)
  1. HUMIRA [Suspect]
     Active Substance: ADALIMUMAB
     Indication: Product used for unknown indication
     Route: 058

REACTIONS (27)
  - Heart valve operation [Recovering/Resolving]
  - General physical health deterioration [Unknown]
  - Haematochezia [Unknown]
  - Back pain [Unknown]
  - Weight decreased [Unknown]
  - Decreased appetite [Unknown]
  - Obstruction [Unknown]
  - Increased tendency to bruise [Unknown]
  - Anaemia [Unknown]
  - Pain [Unknown]
  - Mobility decreased [Unknown]
  - Eye colour change [Unknown]
  - Respiratory disorder [Unknown]
  - Dry skin [Unknown]
  - Delirium [Unknown]
  - Headache [Unknown]
  - Nausea [Unknown]
  - Polyp [Unknown]
  - Peripheral swelling [Unknown]
  - Infection [Unknown]
  - Sepsis [Unknown]
  - Oropharyngeal pain [Unknown]
  - Abdominal distension [Unknown]
  - Constipation [Unknown]
  - Diarrhoea [Unknown]
  - Blood urine present [Unknown]
  - Gait inability [Unknown]

NARRATIVE: CASE EVENT DATE: 20211225
